FAERS Safety Report 8028846-1 (Version None)
Quarter: 2012Q1

REPORT INFORMATION
  Report Type: 
  Country: None (occurrence: None)
  Receive Date: 20120106
  Receipt Date: 20091130
  Transmission Date: 20120608
  Serious: Yes (Hospitalization)
  Sender: FDA-Public Use
  Company Number: US-GLAXOSMITHKLINE-A0833024A

PATIENT
  Sex: Male
  Weight: 98.2 kg

DRUGS (8)
  1. PREVACID [Concomitant]
  2. ANEMAGEN [Concomitant]
  3. AVANDIA [Suspect]
     Indication: DIABETES MELLITUS
     Dosage: 4MG TWICE PER DAY
     Route: 048
  4. INSULIN [Concomitant]
  5. METFORMIN HCL [Concomitant]
  6. ACCUPRIL [Concomitant]
  7. ZOCOR [Concomitant]
  8. NEURONTIN [Concomitant]

REACTIONS (4)
  - MYOCARDIAL INFARCTION [None]
  - CARDIOVASCULAR DISORDER [None]
  - CARDIAC FAILURE CONGESTIVE [None]
  - CORONARY ARTERY DISEASE [None]
